FAERS Safety Report 12446966 (Version 1)
Quarter: 2016Q2

REPORT INFORMATION
  Report Type: Spontaneous
  Country: US (occurrence: None)
  Receive Date: 20160607
  Receipt Date: 20160607
  Transmission Date: 20160815
  Serious: Yes (Life-Threatening)
  Sender: FDA-Public Use
  Company Number: None

PATIENT
  Age: 61 Year
  Sex: Male
  Weight: 111.3 kg

DRUGS (2)
  1. DIPHENHYDRAMINE. [Suspect]
     Active Substance: DIPHENHYDRAMINE
     Route: 042
     Dates: start: 20160602, end: 20160606
  2. HYDROMORPHONE [Suspect]
     Active Substance: HYDROMORPHONE
     Route: 042
     Dates: start: 20160602, end: 20160606

REACTIONS (12)
  - Aspiration [None]
  - Somnolence [None]
  - Overdose [None]
  - Bradycardia [None]
  - Pruritus [None]
  - Sedation [None]
  - Pulse absent [None]
  - Respiratory depression [None]
  - Cardiac arrest [None]
  - Pulseless electrical activity [None]
  - Respiratory acidosis [None]
  - Unresponsive to stimuli [None]

NARRATIVE: CASE EVENT DATE: 20160606
